FAERS Safety Report 4449053-5 (Version None)
Quarter: 2004Q3

REPORT INFORMATION
  Report Type: 
  Country: None (occurrence: None)
  Receive Date: 20040910
  Receipt Date: 20040830
  Transmission Date: 20050211
  Serious: Yes (Disabling, Other)
  Sender: FDA-Public Use
  Company Number: 2004IM000771

PATIENT
  Age: 64 Year
  Sex: Male

DRUGS (3)
  1. ADVAFERON (A643_INTERFERON ALFACON-1) [Suspect]
     Indication: HEPATITIS C
     Dosage: 18 MU; QOD; INTRAMUSCULAR
     Route: 030
     Dates: start: 20020520, end: 20030801
  2. EPINASTINE HYDROCHLORIDE [Concomitant]
  3. URSODEOXYCHOLIC ACID [Concomitant]

REACTIONS (3)
  - INJECTION SITE DESQUAMATION [None]
  - INJECTION SITE NECROSIS [None]
  - INJECTION SITE ULCER [None]
